FAERS Safety Report 15785156 (Version 4)
Quarter: 2019Q3

REPORT INFORMATION
  Report Type: Spontaneous
  Country: US (occurrence: US)
  Receive Date: 20190103
  Receipt Date: 20190801
  Transmission Date: 20191004
  Serious: No
  Sender: FDA-Public Use
  Company Number: US-PFIZER INC-2018533585

PATIENT
  Age: 52 Year
  Sex: Female
  Weight: 39.1 kg

DRUGS (4)
  1. ALPRAZOLAM. [Suspect]
     Active Substance: ALPRAZOLAM
     Indication: ANXIETY
     Dosage: UNK, AS NEEDED (HALF OF 0.25MG ABOUT ONCE OR TWICE A DAY, AS NEEDED. USUALLY IN THE MORNING)
     Dates: end: 2018
  2. VITAMIN D [COLECALCIFEROL] [Concomitant]
     Active Substance: CHOLECALCIFEROL
     Dosage: 2000 IU, ALTERNATE DAY
     Dates: start: 201701
  3. ALPRAZOLAM. [Suspect]
     Active Substance: ALPRAZOLAM
     Dosage: 3/4 .25MG AS NEEDED OR APPROX. EVERY 3 HRS
     Dates: start: 201701
  4. LITTLE NOSES [Concomitant]
     Dosage: UNK
     Dates: start: 2016, end: 201807

REACTIONS (9)
  - Insomnia [Unknown]
  - Erythema [Not Recovered/Not Resolved]
  - Irritability [Unknown]
  - Hypersensitivity [Unknown]
  - Skin exfoliation [Unknown]
  - Agitation [Unknown]
  - Drug ineffective [Unknown]
  - Rash [Not Recovered/Not Resolved]
  - Blister [Not Recovered/Not Resolved]

NARRATIVE: CASE EVENT DATE: 201701
